FAERS Safety Report 6828062-2 (Version None)
Quarter: 2010Q3

REPORT INFORMATION
  Report Type: 
  Country: None (occurrence: None)
  Receive Date: 20100709
  Receipt Date: 20100629
  Transmission Date: 20110219
  Serious: Yes (Other)
  Sender: FDA-Public Use
  Company Number: B0664389A

PATIENT
  Age: 11 Year
  Sex: Male

DRUGS (4)
  1. INDOMETHACIN [Suspect]
     Dosage: 50MG PER DAY
     Route: 065
  2. AMOXICILLIN TRIHYDRATE [Suspect]
     Dosage: 1000MG PER DAY
     Route: 065
  3. CLAVULANATE POTASSIUM [Suspect]
     Dosage: 250MG PER DAY
     Route: 065
  4. VALPROATE SODIUM [Suspect]
     Dosage: 400MG PER DAY
     Route: 065

REACTIONS (14)
  - BLOOD LACTATE DEHYDROGENASE INCREASED [None]
  - DELIRIUM [None]
  - DISTURBANCE IN ATTENTION [None]
  - DRUG INTERACTION [None]
  - DRUG LEVEL INCREASED [None]
  - ELECTROENCEPHALOGRAM ABNORMAL [None]
  - HAEMATOCRIT DECREASED [None]
  - HAEMOGLOBIN DECREASED [None]
  - HALLUCINATION, VISUAL [None]
  - ILL-DEFINED DISORDER [None]
  - INSOMNIA [None]
  - IRRITABILITY [None]
  - PLATELET COUNT DECREASED [None]
  - RED BLOOD CELL COUNT DECREASED [None]
